FAERS Safety Report 13135353 (Version 2)
Quarter: 2017Q1

REPORT INFORMATION
  Report Type: Spontaneous
  Country: US (occurrence: US)
  Receive Date: 20170120
  Receipt Date: 20170203
  Transmission Date: 20170428
  Serious: No
  Sender: FDA-Public Use
  Company Number: US-PFIZER INC-2017018934

PATIENT
  Age: 80 Year
  Sex: Male

DRUGS (2)
  1. METOPROLOL TARTRATE. [Suspect]
     Active Substance: METOPROLOL TARTRATE
     Dosage: UNK
  2. ZYTIGA [Interacting]
     Active Substance: ABIRATERONE ACETATE
     Dosage: UNK

REACTIONS (1)
  - Drug interaction [Unknown]
